FAERS Safety Report 22002384 (Version 2)
Quarter: 2023Q1

REPORT INFORMATION
  Report Type: Spontaneous
  Country: JP (occurrence: JP)
  Receive Date: 20230217
  Receipt Date: 20230306
  Transmission Date: 20230418
  Serious: Yes (Hospitalization)
  Sender: FDA-Public Use
  Company Number: JP-CHUGAI-2023004605

PATIENT
  Age: 8 Decade
  Sex: Female

DRUGS (1)
  1. ACTEMRA [Suspect]
     Active Substance: TOCILIZUMAB
     Indication: Castleman^s disease
     Dosage: UNK, ONCE/2WEEKS
     Route: 041
     Dates: start: 20221108, end: 20221122

REACTIONS (1)
  - Peripheral T-cell lymphoma unspecified [Not Recovered/Not Resolved]

NARRATIVE: CASE EVENT DATE: 20221206
